FAERS Safety Report 4680763-0 (Version None)
Quarter: 2005Q2

REPORT INFORMATION
  Report Type: 
  Country: None (occurrence: None)
  Receive Date: 20050603
  Receipt Date: 20050524
  Transmission Date: 20051028
  Serious: Yes (Hospitalization)
  Sender: FDA-Public Use
  Company Number: US-JNJFOC-20031002266

PATIENT
  Sex: Female
  Weight: 68.95 kg

DRUGS (20)
  1. REMICADE [Suspect]
     Dosage: 4 VIALS, 1 IN 1 DAY(S)
     Route: 042
  2. REMICADE [Suspect]
     Indication: CROHN'S DISEASE
     Dosage: 4 VIALS, 1 IN 1 DAY(S)
     Route: 042
  3. ENALAPRIL MALEATE [Suspect]
     Indication: DRUG USE FOR UNKNOWN INDICATION
  4. NEXIUM [Concomitant]
  5. CIPRO [Concomitant]
  6. FOSAMAX [Concomitant]
  7. AMITRIPTYLINE [Concomitant]
  8. AMITRIPTYLINE [Concomitant]
  9. PREMARIN [Concomitant]
  10. TRIAMTERENE AND HYDROCHLOROTHIAZIDE [Concomitant]
     Dosage: 75/50 MG
  11. TRIAMTERENE AND HYDROCHLOROTHIAZIDE [Concomitant]
  12. VIOXX [Concomitant]
  13. VIOXX [Concomitant]
  14. PREMARIN [Concomitant]
  15. HYDROCHLOROTHIAZIDE [Concomitant]
  16. ANTIVERT [Concomitant]
  17. ANTIVERT [Concomitant]
  18. ASPIRIN [Concomitant]
     Dosage: BABY ASPIRIN
  19. VITAMIN B-12 [Concomitant]
  20. ZANTAC [Concomitant]

REACTIONS (5)
  - ANEURYSM [None]
  - CATHETERISATION CARDIAC [None]
  - CEREBROVASCULAR ACCIDENT [None]
  - HYPERSENSITIVITY [None]
  - SERUM SICKNESS [None]
